FAERS Safety Report 5781041-9 (Version None)
Quarter: 2008Q2

REPORT INFORMATION
  Report Type: 
  Country: None (occurrence: None)
  Receive Date: 20080620
  Receipt Date: 20080611
  Transmission Date: 20081010
  Serious: Yes (Hospitalization, Disabling, Other)
  Sender: FDA-Public Use
  Company Number: US-PFIZER INC-2008049343

PATIENT
  Sex: Female
  Weight: 49.9 kg

DRUGS (2)
  1. XALATAN [Suspect]
  2. TYLENOL [Concomitant]

REACTIONS (3)
  - BEDRIDDEN [None]
  - LIMB INJURY [None]
  - LOCALISED INFECTION [None]
